FAERS Safety Report 6315851-6 (Version None)
Quarter: 2009Q3

REPORT INFORMATION
  Report Type: 
  Country: None (occurrence: None)
  Receive Date: 20090818
  Receipt Date: 20090804
  Transmission Date: 20100115
  Serious: Yes (Hospitalization)
  Sender: FDA-Public Use
  Company Number: 2008AL007981

PATIENT
  Age: 49 Year
  Sex: Male

DRUGS (22)
  1. DIGOXIN [Suspect]
     Indication: CARDIAC FAILURE CONGESTIVE
     Dosage: 0.25MG, DAILY, PO
     Route: 048
  2. COUMADIN [Concomitant]
  3. ENALAPRIL MALEATE [Concomitant]
  4. COREG [Concomitant]
  5. ALDACTONE [Concomitant]
  6. PROTONIX [Concomitant]
  7. LIPITOR [Concomitant]
  8. ASPIRIN [Concomitant]
  9. INSULIN [Concomitant]
  10. NOVOLOG [Concomitant]
  11. DOBUTAMINE HCL [Concomitant]
  12. HEPARIN [Concomitant]
  13. THIAMINE HCL [Concomitant]
  14. FOLATE [Concomitant]
  15. LIPITOR [Concomitant]
  16. CAPOTEN [Concomitant]
  17. ALDACTONE [Concomitant]
  18. LANTUS [Concomitant]
  19. NOVOLIN INSULIN [Concomitant]
  20. PROTONIX [Concomitant]
  21. ENALAPRIL MALEATE [Concomitant]
  22. LOPRESSOR [Concomitant]

REACTIONS (22)
  - ACUTE MYOCARDIAL INFARCTION [None]
  - ALTERED VISUAL DEPTH PERCEPTION [None]
  - APPENDIX DISORDER [None]
  - CARDIOGENIC SHOCK [None]
  - CATARACT [None]
  - CORONARY ARTERY OCCLUSION [None]
  - DECREASED APPETITE [None]
  - DIZZINESS [None]
  - GALLBLADDER DISORDER [None]
  - HAEMODYNAMIC INSTABILITY [None]
  - HALO VISION [None]
  - HYPERLIPIDAEMIA [None]
  - HYPOPERFUSION [None]
  - LIVER FUNCTION TEST ABNORMAL [None]
  - MULTIPLE INJURIES [None]
  - NAUSEA [None]
  - NEPHROLITHIASIS [None]
  - PALPITATIONS [None]
  - RETINAL VASCULAR DISORDER [None]
  - RETINOPATHY HYPERTENSIVE [None]
  - THERAPEUTIC AGENT TOXICITY [None]
  - VITREOUS HAEMORRHAGE [None]
